FAERS Safety Report 20729974 (Version 1)
Quarter: 2022Q2

REPORT INFORMATION
  Report Type: Spontaneous
  Country: US (occurrence: US)
  Receive Date: 20220420
  Receipt Date: 20220420
  Transmission Date: 20220721
  Serious: No
  Sender: FDA-Public Use
  Company Number: US-PFIZER INC-202101767828

PATIENT
  Age: 50 Year
  Sex: Female

DRUGS (1)
  1. IBRANCE [Suspect]
     Active Substance: PALBOCICLIB
     Dosage: 125 MG, ALTERNATE DAY (CHANGED FREQUENCY TO EVERY OTHER DAY)
     Dates: start: 20211031

REACTIONS (2)
  - Off label use [Unknown]
  - White blood cell count decreased [Recovering/Resolving]
